FAERS Safety Report 21390002 (Version 1)
Quarter: 2022Q3

REPORT INFORMATION
  Report Type: Spontaneous
  Country: US (occurrence: None)
  Receive Date: 20220927
  Receipt Date: 20220927
  Transmission Date: 20221027
  Serious: Yes (Hospitalization)
  Sender: FDA-Public Use
  Company Number: None

PATIENT
  Sex: Female

DRUGS (1)
  1. TACROLIMUS [Suspect]
     Active Substance: TACROLIMUS
     Indication: Hepatic cancer
     Dosage: 0.5MG TWICE DAILY BY MOUTH?
     Route: 048
     Dates: start: 202011

REACTIONS (1)
  - Cellulitis [None]
